FAERS Safety Report 23341574 (Version 1)
Quarter: 2023Q4

REPORT INFORMATION
  Report Type: Spontaneous
  Country: US (occurrence: None)
  Receive Date: 20231226
  Receipt Date: 20231226
  Transmission Date: 20240109
  Serious: Yes (Hospitalization)
  Sender: FDA-Public Use
  Company Number: None

PATIENT
  Sex: Female

DRUGS (2)
  1. CAPECITABINE [Suspect]
     Active Substance: CAPECITABINE
     Indication: Breast cancer female
     Dosage: 2000MG TWICE DAILY ORAL
     Route: 048
     Dates: start: 202309
  2. XELODA [Concomitant]
     Active Substance: CAPECITABINE

REACTIONS (1)
  - Hospitalisation [None]
